FAERS Safety Report 15357900 (Version 1)
Quarter: 2018Q3

REPORT INFORMATION
  Report Type: Spontaneous
  Country: PL (occurrence: PL)
  Receive Date: 20180906
  Receipt Date: 20180906
  Transmission Date: 20181010
  Serious: Yes (Other)
  Sender: FDA-Public Use
  Company Number: PHHY2018PL090594

PATIENT
  Age: 89 Year
  Sex: Male

DRUGS (2)
  1. DIFICLIR [Suspect]
     Active Substance: FIDAXOMICIN
     Indication: CLOSTRIDIUM DIFFICILE COLITIS
     Dosage: UNK, UNKNOWN FREQ.
     Route: 065
  2. VANCOMYCIN [Suspect]
     Active Substance: VANCOMYCIN
     Indication: CLOSTRIDIUM DIFFICILE COLITIS
     Dosage: UNK, UNKNOWN FREQ.
     Route: 065

REACTIONS (3)
  - Vascular rupture [Not Recovered/Not Resolved]
  - Renal disorder [Not Recovered/Not Resolved]
  - Polyuria [Unknown]
